FAERS Safety Report 5257087-6 (Version None)
Quarter: 2007Q1

REPORT INFORMATION
  Report Type: 
  Country: None (occurrence: None)
  Receive Date: 20070305
  Receipt Date: 20070305
  Transmission Date: 20070707
  Serious: Yes (Life-Threatening, Hospitalization)
  Sender: FDA-Public Use
  Company Number: None

PATIENT
  Age: 55 Year
  Sex: Female
  Weight: 73 kg

DRUGS (2)
  1. DROPERIDOL [Suspect]
     Dosage: 0.625 MG, IV X 1
     Route: 042
     Dates: start: 20070228
  2. ATIVAN [Concomitant]

REACTIONS (5)
  - ATRIAL FIBRILLATION [None]
  - DRUG INEFFECTIVE [None]
  - NAUSEA [None]
  - PROCEDURAL COMPLICATION [None]
  - PROCEDURAL VOMITING [None]
